FAERS Safety Report 8921828 (Version 2)
Quarter: 2012Q4

REPORT INFORMATION
  Report Type: 
  Country: US (occurrence: US)
  Receive Date: 20121121
  Receipt Date: 20121203
  Transmission Date: 20130627
  Serious: Yes (Hospitalization, Other)
  Sender: FDA-Public Use
  Company Number: US-PFIZER INC-2012289462

PATIENT
  Age: 4 None
  Sex: Male

DRUGS (13)
  1. XANAX [Suspect]
     Dosage: UNK
  2. PERCOCET [Suspect]
     Indication: PAIN
     Dosage: 10/325 mg, as needed (2 tablets)
  3. OXYCONTIN [Suspect]
     Indication: PAIN
     Dosage: 40 mg, 2x/day
  4. PAXIL [Suspect]
     Indication: BIPOLAR AFFECTIVE DISORDER
     Dosage: 20 mg, UNK
  5. PAXIL [Suspect]
     Indication: GENERALIZED ANXIETY DISORDER
     Dosage: 10 mg, UNK
  6. ABILIFY [Suspect]
     Indication: BIPOLAR AFFECTIVE DISORDER
     Dosage: UNK
  7. ABILIFY [Suspect]
     Indication: GENERALIZED ANXIETY DISORDER
  8. DEPAKOTE [Suspect]
     Indication: BIPOLAR AFFECTIVE DISORDER
     Dosage: UNK
  9. DEPAKOTE [Suspect]
     Indication: GENERALIZED ANXIETY DISORDER
  10. ATIVAN [Suspect]
     Indication: BIPOLAR AFFECTIVE DISORDER
     Dosage: UNK
  11. ATIVAN [Suspect]
     Indication: GENERALIZED ANXIETY DISORDER
  12. KLONOPIN [Suspect]
     Indication: BIPOLAR AFFECTIVE DISORDER
     Dosage: UNK
  13. KLONOPIN [Suspect]
     Indication: GENERALIZED ANXIETY DISORDER

REACTIONS (12)
  - Toxicity to various agents [Recovered/Resolved with Sequelae]
  - Respiratory distress [Recovered/Resolved with Sequelae]
  - Sedation [Recovered/Resolved with Sequelae]
  - Drug abuse [Unknown]
  - Suicidal ideation [Unknown]
  - Rib fracture [Unknown]
  - Musculoskeletal chest pain [Unknown]
  - Skeletal injury [Unknown]
  - Brain injury [Unknown]
  - Activities of daily living impaired [Unknown]
  - Facial bones fracture [Unknown]
  - Upper respiratory tract infection [Unknown]
